FAERS Safety Report 17022337 (Version 1)
Quarter: 2019Q4

REPORT INFORMATION
  Report Type: Spontaneous
  Country: US (occurrence: US)
  Receive Date: 20191008
  Receipt Date: 20191008
  Transmission Date: 20200122
  Serious: Yes (Hospitalization)
  Sender: FDA-Public Use
  Company Number: None

PATIENT
  Sex: Female

DRUGS (25)
  1. SILDENAFIL 20MG [Suspect]
     Active Substance: SILDENAFIL
     Indication: PULMONARY ARTERIAL HYPERTENSION
     Route: 048
     Dates: start: 20180106
  2. FISH OIL [Concomitant]
     Active Substance: FISH OIL
  3. FLUCONAZOLE. [Concomitant]
     Active Substance: FLUCONAZOLE
  4. MERCAPTOPUR [Concomitant]
  5. PROZAC [Concomitant]
     Active Substance: FLUOXETINE HYDROCHLORIDE
  6. ACYCLOVIR. [Concomitant]
     Active Substance: ACYCLOVIR
  7. POT CL [Concomitant]
  8. CLONAZEPAM. [Concomitant]
     Active Substance: CLONAZEPAM
  9. PREVACID [Concomitant]
     Active Substance: LANSOPRAZOLE
  10. PROCHLORPER [Concomitant]
  11. REMOUDULIN [Concomitant]
  12. SPIRONOLACT [Concomitant]
     Active Substance: SPIRONOLACTONE
  13. FERROUS SULFATE. [Concomitant]
     Active Substance: FERROUS SULFATE
  14. CALCIUM/D3 [Concomitant]
     Active Substance: CALCIUM\CHOLECALCIFEROL
  15. PHYTONADIONE. [Concomitant]
     Active Substance: PHYTONADIONE
  16. PREDNISONE. [Concomitant]
     Active Substance: PREDNISONE
  17. URISODIOL [Concomitant]
  18. ALBUTEROL. [Concomitant]
     Active Substance: ALBUTEROL
  19. COLACE [Concomitant]
     Active Substance: DOCUSATE SODIUM
  20. LEVOFLOXACIN. [Concomitant]
     Active Substance: LEVOFLOXACIN
  21. LYRICA [Concomitant]
     Active Substance: PREGABALIN
  22. ZOFRAN [Concomitant]
     Active Substance: ONDANSETRON HYDROCHLORIDE
  23. CINNAMON. [Concomitant]
     Active Substance: CINNAMON
  24. CYCLOBEN [Concomitant]
     Active Substance: CYCLOBENZAPRINE
  25. FUROSEMIDE. [Concomitant]
     Active Substance: FUROSEMIDE

REACTIONS (1)
  - Infection [None]
